FAERS Safety Report 4606727-0 (Version None)
Quarter: 2005Q1

REPORT INFORMATION
  Report Type: 
  Country: None (occurrence: None)
  Receive Date: 20050309
  Receipt Date: 20050217
  Transmission Date: 20050727
  Serious: Yes (Death, Other)
  Sender: FDA-Public Use
  Company Number: USA041285616

PATIENT
  Age: 50 Year
  Sex: Female
  Weight: 91 kg

DRUGS (8)
  1. ZYPREXA [Suspect]
     Indication: MAJOR DEPRESSION
     Dosage: 15 MG DAY
  2. NEURONTIN (GABAPENTIN PFIZER) [Concomitant]
  3. COUMADIN [Concomitant]
  4. TRAMADOL HCL [Concomitant]
  5. CITALOPRAM HYDROBROMIDE [Concomitant]
  6. LEXAPRO [Concomitant]
  7. COZAAR [Concomitant]
  8. TOPROL-XL [Concomitant]

REACTIONS (6)
  - ANTIDEPRESSANT DRUG LEVEL ABOVE THERAPEUTIC [None]
  - CARDIAC DISORDER [None]
  - CHEST PAIN [None]
  - DIABETES MELLITUS [None]
  - DRUG TOXICITY [None]
  - WEIGHT INCREASED [None]
